FAERS Safety Report 7553048 (Version 3)
Quarter: 2012Q4

REPORT INFORMATION
  Report Type: Spontaneous
  Country: AU (occurrence: None)
  Receive Date: 20100813
  Receipt Date: 20120820
  Transmission Date: 20130627
  Serious: Yes (Hospitalization, Other)
  Sender: FDA-Public Use
  Company Number: 2010AP001615

PATIENT
  Age: 2 Year
  Sex: Male

DRUGS (2)
  1. LAMOTRIGINE [Suspect]
     Dosage: 3 TAB; PO, 3 TAB; TAB; PO
     Route: 048
  2. VITAMINS [Suspect]
     Dosage: 3 TAB; PO, 3 TAB; TAB; PO
     Route: 048

REACTIONS (17)
  - Overdose [None]
  - Convulsion [None]
  - Nystagmus [None]
  - Hyperreflexia [None]
  - Irritability [None]
  - Somnolence [None]
  - Blood lactic acid increased [None]
  - Ataxia [None]
  - Toxicity to various agents [None]
  - Vomiting [None]
  - Accidental exposure to product by child [None]
  - Clumsiness [None]
  - Muscle twitching [None]
  - Heart rate increased [None]
  - Body temperature decreased [None]
  - Blood lactic acid increased [None]
  - Respiratory rate increased [None]
